FAERS Safety Report 18240674 (Version 1)
Quarter: 2020Q3

REPORT INFORMATION
  Report Type: Spontaneous
  Country: FR (occurrence: FR)
  Receive Date: 20200908
  Receipt Date: 20200908
  Transmission Date: 20201103
  Serious: Yes (Hospitalization)
  Sender: FDA-Public Use
  Company Number: FR-TEVA-2020-FR-1823354

PATIENT
  Age: 73 Year
  Sex: Male

DRUGS (5)
  1. CETIRIZINE (DICHLORHYDRATE DE) [Suspect]
     Active Substance: CETIRIZINE HYDROCHLORIDE
     Indication: SEASONAL ALLERGY
     Dosage: UNIT DOSE 10MG
     Route: 048
     Dates: start: 20200512
  2. PREGABALINE [Suspect]
     Active Substance: PREGABALIN
     Indication: NEUROPATHY PERIPHERAL
     Dosage: UNIT DOSE 450MG
     Route: 048
     Dates: start: 20200320
  3. ELIQUIS [Suspect]
     Active Substance: APIXABAN
     Indication: PULMONARY EMBOLISM
     Dosage: UNIT DOSE 1DF
     Route: 048
     Dates: start: 20200508
  4. FLUOXETINE [Suspect]
     Active Substance: FLUOXETINE HYDROCHLORIDE
     Indication: DEPRESSION
     Dosage: UNIT DOSE 20MG
     Route: 048
     Dates: start: 20200324
  5. MIRTAZAPINE. [Suspect]
     Active Substance: MIRTAZAPINE
     Indication: DEPRESSION
     Dosage: UNIT DOSE 30MG
     Route: 048
     Dates: start: 20200331

REACTIONS (1)
  - Purpura [Not Recovered/Not Resolved]

NARRATIVE: CASE EVENT DATE: 20200729
